FAERS Safety Report 25952230 (Version 1)
Quarter: 2025Q4

REPORT INFORMATION
  Report Type: Spontaneous
  Country: US (occurrence: US)
  Receive Date: 20251023
  Receipt Date: 20251023
  Transmission Date: 20260118
  Serious: Yes (Other)
  Sender: SANOFI AVENTIS
  Company Number: US-COSETTE-CP2025US001038

PATIENT
  Age: 80 Year
  Sex: Female
  Weight: 45.36 kg

DRUGS (3)
  1. AMBIEN [Suspect]
     Active Substance: ZOLPIDEM TARTRATE
     Indication: Insomnia
     Dosage: UNK UNK, QD (N/A N/A 1 DOSE EVERY 1 DAY)
     Route: 065
     Dates: end: 202509
  2. PEPTO-BISMOL [Concomitant]
     Active Substance: BISMUTH SUBSALICYLATE
     Indication: Dyspepsia
     Route: 065
  3. TYLENOL [Concomitant]
     Active Substance: ACETAMINOPHEN
     Indication: Product used for unknown indication
     Route: 065

REACTIONS (5)
  - Dementia [Unknown]
  - Somnambulism [Unknown]
  - Dizziness [Unknown]
  - Fall [Unknown]
  - Product use issue [Unknown]
